FAERS Safety Report 5332906-3 (Version None)
Quarter: 2007Q2

REPORT INFORMATION
  Report Type: 
  Country: None (occurrence: None)
  Receive Date: 20070521
  Receipt Date: 20070508
  Transmission Date: 20071010
  Serious: Yes (Hospitalization, Disabling, Other)
  Sender: FDA-Public Use
  Company Number: 2007-00748

PATIENT
  Age: 83 Year
  Sex: Female

DRUGS (9)
  1. VELCADE [Suspect]
     Indication: MULTIPLE MYELOMA
     Dosage: SEE IMAGE
     Dates: start: 20070223, end: 20070305
  2. VELCADE [Suspect]
     Indication: MULTIPLE MYELOMA
     Dosage: SEE IMAGE
     Dates: start: 20070323, end: 20070402
  3. DECADRON [Suspect]
     Indication: MULTIPLE MYELOMA
     Dosage: 20.00 MG
     Dates: start: 20070223
  4. SULFAMETHOXAZOLE + TRIMETHOPRIM [Concomitant]
  5. DIFLUCAN [Concomitant]
  6. MUCOSTA (REBAMIPIDE) [Concomitant]
  7. POLYMYXIN B SULFATE (POLYMYXIN B SULFATE) [Concomitant]
  8. OMEPRAL (OMEPRAZOLE) [Concomitant]
  9. MAGNESIUM OXIDE (MAGNESIUM OXIDE) [Concomitant]

REACTIONS (9)
  - ASCITES [None]
  - HYPONATRAEMIA [None]
  - LIVER DISORDER [None]
  - NERVE INJURY [None]
  - NEUROPATHY PERIPHERAL [None]
  - OEDEMA PERIPHERAL [None]
  - PLATELET COUNT DECREASED [None]
  - PLEURAL EFFUSION [None]
  - VOLVULUS [None]
